FAERS Safety Report 18201012 (Version 1)
Quarter: 2020Q3

REPORT INFORMATION
  Report Type: Spontaneous
  Country: JP (occurrence: JP)
  Receive Date: 20200826
  Receipt Date: 20200826
  Transmission Date: 20201103
  Serious: Yes (Life-Threatening, Hospitalization, Other)
  Sender: FDA-Public Use
  Company Number: JP-INSUD PHARMA-2008JP00190

PATIENT

DRUGS (6)
  1. ANTIEMETICS AND ANTINAUSEANTS [Concomitant]
     Active Substance: UNSPECIFIED INGREDIENT
     Indication: HELICOBACTER INFECTION
  2. LANSOPRAZOLE. [Suspect]
     Active Substance: LANSOPRAZOLE
     Indication: PEPTIC ULCER
     Dosage: 30 MG/DAY
     Route: 065
  3. ESOMEPRAZOLE. [Suspect]
     Active Substance: ESOMEPRAZOLE MAGNESIUM
     Indication: PEPTIC ULCER
     Dosage: 20 MG/DAY
     Route: 065
  4. LANSOPRAZOLE. [Suspect]
     Active Substance: LANSOPRAZOLE
     Indication: HELICOBACTER INFECTION
  5. ANTIEMETICS AND ANTINAUSEANTS [Concomitant]
     Active Substance: UNSPECIFIED INGREDIENT
     Indication: PEPTIC ULCER
  6. VONOPRAZAN FUMARATE [Suspect]
     Active Substance: VONOPRAZAN FUMARATE
     Indication: PEPTIC ULCER
     Dosage: 20 MG/DAY
     Route: 065

REACTIONS (16)
  - Wernicke-Korsakoff syndrome [Recovering/Resolving]
  - Hypergastrinaemia [Recovered/Resolved]
  - Confabulation [Recovered/Resolved]
  - Muscular weakness [Unknown]
  - Peripheral sensory neuropathy [Not Recovered/Not Resolved]
  - Vitamin B1 deficiency [Unknown]
  - Gastric ulcer [Recovering/Resolving]
  - Altered state of consciousness [Recovering/Resolving]
  - Dysaesthesia [Unknown]
  - Gait disturbance [Not Recovered/Not Resolved]
  - Metabolic acidosis [Unknown]
  - Disorientation [Unknown]
  - Sensory disturbance [Unknown]
  - Vomiting [Recovering/Resolving]
  - Memory impairment [Unknown]
  - Somnolence [Unknown]
